FAERS Safety Report 19923970 (Version 1)
Quarter: 2021Q4

REPORT INFORMATION
  Report Type: Spontaneous
  Country: US (occurrence: US)
  Receive Date: 20211005
  Receipt Date: 20211005
  Transmission Date: 20220303
  Serious: No
  Sender: FDA-Public Use
  Company Number: None

PATIENT

DRUGS (4)
  1. FLUBLOK QUADRIVALENT NORTHERN HEMISPHERE 2020/2021 [Suspect]
     Active Substance: INFLUENZA A VIRUS A/HAWAII/70/2019 (H1N1) RECOMBINANT HEMAGGLUTININ ANTIGEN\INFLUENZA A VIRUS A/MINN
     Route: 030
  2. FLUZONE QUADRIVALENT NOS [Suspect]
     Active Substance: INFLUENZA A VIRUS A/CALIFORNIA/7/2009 X-179A (H1N1) ANTIGEN (FORMALDEHYDE INACTIVATED)\INFLUENZA A V
     Route: 030
  3. PREGABALIN [Suspect]
     Active Substance: PREGABALIN
  4. PREGABALIN [Suspect]
     Active Substance: PREGABALIN

REACTIONS (1)
  - Product appearance confusion [None]
